FAERS Safety Report 4304894-X (Version None)
Quarter: 2004Q1

REPORT INFORMATION
  Report Type: 
  Country: None (occurrence: None)
  Receive Date: 20040226
  Receipt Date: 20040107
  Transmission Date: 20041129
  Serious: Yes (Other)
  Sender: FDA-Public Use
  Company Number: US-GLAXOSMITHKLINE-A0491909A

PATIENT
  Age: 39 Year
  Sex: Male
  Weight: 108.2 kg

DRUGS (1)
  1. WELLBUTRIN [Suspect]
     Dosage: 150MG PER DAY
     Route: 048
     Dates: start: 20031228, end: 20040103

REACTIONS (2)
  - AMNESIA [None]
  - GRAND MAL CONVULSION [None]
